FAERS Safety Report 24710909 (Version 1)
Quarter: 2024Q4

REPORT INFORMATION
  Report Type: Spontaneous
  Country: US (occurrence: None)
  Receive Date: 20241209
  Receipt Date: 20241209
  Transmission Date: 20250115
  Serious: Yes (Other)
  Sender: UNICHEM
  Company Number: US-Unichem Pharmaceuticals (USA) Inc-UCM202412-001617

PATIENT

DRUGS (6)
  1. CELECOXIB [Suspect]
     Active Substance: CELECOXIB
     Indication: Triple negative breast cancer
     Route: 048
  2. CELECOXIB [Suspect]
     Active Substance: CELECOXIB
     Route: 048
  3. RINTATOLIMOD [Suspect]
     Active Substance: RINTATOLIMOD
     Indication: Triple negative breast cancer
     Route: 042
  4. Doxorubicin/ Cyclophosphamide [Concomitant]
     Indication: Product used for unknown indication
     Dosage: 60/600MG/M2
     Route: 042
  5. PEGFILGRASTIM [Concomitant]
     Active Substance: PEGFILGRASTIM
     Indication: Product used for unknown indication
     Dosage: UNKNOWN
  6. PACLITAXEL [Concomitant]
     Active Substance: PACLITAXEL
     Indication: Triple negative breast cancer
     Route: 042

REACTIONS (2)
  - Neutropenia [Unknown]
  - Product use in unapproved indication [Unknown]
